FAERS Safety Report 24432852 (Version 2)
Quarter: 2024Q4

REPORT INFORMATION
  Report Type: Report from Study
  Country: US (occurrence: US)
  Receive Date: 20241014
  Receipt Date: 20241022
  Transmission Date: 20250115
  Serious: Yes (Hospitalization, Other)
  Sender: PFIZER
  Company Number: US-PFIZER INC-202400274630

PATIENT
  Age: 82 Year
  Sex: Female

DRUGS (3)
  1. MEKTOVI [Suspect]
     Active Substance: BINIMETINIB
     Dosage: 45 MG, 2X/DAY (EVERY 12 HOURS)
     Route: 048
     Dates: start: 20241001
  2. BRAFTOVI [Suspect]
     Active Substance: ENCORAFENIB
     Dosage: 75MG CAPSULE TAKE BY MOUTH 6 CAPSULES (450MG) DAILY
     Route: 048
     Dates: start: 20241001
  3. POTASSIUM CITRATE [Concomitant]
     Active Substance: POTASSIUM CITRATE
     Dosage: UNK

REACTIONS (14)
  - Urinary tract infection [Recovering/Resolving]
  - Disease recurrence [Recovering/Resolving]
  - Fall [Not Recovered/Not Resolved]
  - Wrist fracture [Not Recovered/Not Resolved]
  - Impaired quality of life [Not Recovered/Not Resolved]
  - Mobility decreased [Not Recovered/Not Resolved]
  - Memory impairment [Unknown]
  - Urine odour abnormal [Unknown]
  - Asthenia [Unknown]
  - Incontinence [Unknown]
  - Tremor [Unknown]
  - Nausea [Recovering/Resolving]
  - Chills [Unknown]
  - Delusional perception [Unknown]

NARRATIVE: CASE EVENT DATE: 20241001
